FAERS Safety Report 9924830 (Version 1)
Quarter: 2014Q1

REPORT INFORMATION
  Report Type: Spontaneous
  Country: US (occurrence: None)
  Receive Date: 20140224
  Receipt Date: 20140224
  Transmission Date: 20141002
  Serious: No
  Sender: FDA-Public Use
  Company Number: None

PATIENT
  Age: 48 Year
  Sex: Female

DRUGS (1)
  1. LEVULAN KERASTICK [Suspect]
     Indication: ACTINIC KERATOSIS
     Dosage: TOPICAL ONCE APPLIED TO A SURFACE USUALLY THE SKIN
     Route: 061
     Dates: start: 20140218

REACTIONS (3)
  - Application site pain [None]
  - Rash pustular [None]
  - Impaired work ability [None]
